FAERS Safety Report 10760406 (Version 1)
Quarter: 2015Q1

REPORT INFORMATION
  Report Type: Spontaneous
  Country: AR (occurrence: AR)
  Receive Date: 20150204
  Receipt Date: 20150204
  Transmission Date: 20150721
  Serious: Yes (Hospitalization, Other)
  Sender: FDA-Public Use
  Company Number: AR-AMGEN-ARGSP2015008935

PATIENT
  Age: 58 Year
  Sex: Female

DRUGS (1)
  1. ENBREL [Suspect]
     Active Substance: ETANERCEPT
     Indication: RHEUMATOID ARTHRITIS
     Dosage: 50 MG, WEEKLY
     Route: 065
     Dates: start: 20131217, end: 201406

REACTIONS (7)
  - Urinary tract infection [Unknown]
  - Pneumonia [Unknown]
  - Weight decreased [Unknown]
  - Drug intolerance [Unknown]
  - Diabetes mellitus [Unknown]
  - Nausea [Unknown]
  - Pyrexia [Unknown]
